FAERS Safety Report 24235448 (Version 1)
Quarter: 2024Q3

REPORT INFORMATION
  Report Type: Report from Study
  Country: US (occurrence: US)
  Receive Date: 20240821
  Receipt Date: 20240821
  Transmission Date: 20241016
  Serious: Yes (Other)
  Sender: ABBVIE
  Company Number: US-ABBVIE-5879524

PATIENT
  Sex: Female

DRUGS (2)
  1. SKYRIZI [Suspect]
     Active Substance: RISANKIZUMAB-RZAA
     Indication: Psoriatic arthropathy
     Dosage: STRENGTH:150MG/ML?WEEK 0
     Route: 058
     Dates: start: 20240423, end: 20240423
  2. SKYRIZI [Suspect]
     Active Substance: RISANKIZUMAB-RZAA
     Dosage: STRENGTH:150MG/ML?WEEK 4?THEN EVERY 12 WEEKS THEREAFTER
     Route: 058
     Dates: start: 2024, end: 2024

REACTIONS (8)
  - Myocardial infarction [Unknown]
  - Middle insomnia [Unknown]
  - Nerve compression [Unknown]
  - Rash [Unknown]
  - Pain [Unknown]
  - Burning sensation [Unknown]
  - Thyroid disorder [Unknown]
  - Back disorder [Unknown]
